FAERS Safety Report 20341169 (Version 1)
Quarter: 2022Q1

REPORT INFORMATION
  Report Type: Spontaneous
  Country: GB (occurrence: GB)
  Receive Date: 20220117
  Receipt Date: 20220117
  Transmission Date: 20220423
  Serious: Yes (Other)
  Sender: FDA-Public Use
  Company Number: GB-SA-SAC20220112000855

PATIENT
  Sex: Female

DRUGS (1)
  1. LEMTRADA [Suspect]
     Active Substance: ALEMTUZUMAB
     Indication: Multiple sclerosis
     Dosage: UNK
     Route: 042
     Dates: start: 2011

REACTIONS (6)
  - Optic neuritis [Unknown]
  - Condition aggravated [Unknown]
  - Stress [Unknown]
  - Grip strength decreased [Unknown]
  - Pain [Unknown]
  - Nasopharyngitis [Unknown]
